FAERS Safety Report 16697756 (Version 1)
Quarter: 2019Q3

REPORT INFORMATION
  Report Type: Spontaneous
  Country: HU (occurrence: HU)
  Receive Date: 20190813
  Receipt Date: 20190813
  Transmission Date: 20191004
  Serious: Yes (Death, Other)
  Sender: FDA-Public Use
  Company Number: HU-MYLANLABS-2019M1075189

PATIENT
  Age: 60 Year
  Sex: Female

DRUGS (2)
  1. LACTATED RINGERS SOLUTION [Suspect]
     Active Substance: CALCIUM CHLORIDE\POTASSIUM CHLORIDE\SODIUM CHLORIDE\SODIUM LACTATE
     Indication: GASTROENTERITIS
     Dosage: UNK
  2. LEVOFLOXACIN. [Suspect]
     Active Substance: LEVOFLOXACIN
     Indication: GASTROENTERITIS
     Dosage: UNK

REACTIONS (6)
  - Renal failure [Unknown]
  - Cardiac arrest [Fatal]
  - Respiratory arrest [Fatal]
  - Inappropriate antidiuretic hormone secretion [Unknown]
  - Hyponatraemia [Unknown]
  - Drug ineffective [Unknown]
